FAERS Safety Report 15507352 (Version 1)
Quarter: 2018Q4

REPORT INFORMATION
  Report Type: Spontaneous
  Country: AU (occurrence: AU)
  Receive Date: 20181016
  Receipt Date: 20181016
  Transmission Date: 20190205
  Serious: Yes (Hospitalization)
  Sender: FDA-Public Use
  Company Number: AU-SA-2018SA226119

PATIENT
  Sex: Female

DRUGS (1)
  1. FEXOFENADINE [Suspect]
     Active Substance: FEXOFENADINE\FEXOFENADINE HYDROCHLORIDE
     Indication: INFLUENZA
     Dosage: UNK UNK, QM,ONCE A MONTH WHEN SHE FEELS
     Route: 065

REACTIONS (1)
  - Hypertension [Unknown]
